FAERS Safety Report 5902410-X (Version None)
Quarter: 2008Q3

REPORT INFORMATION
  Report Type: 
  Country: None (occurrence: None)
  Receive Date: 20080919
  Receipt Date: 20080716
  Transmission Date: 20090109
  Serious: No
  Sender: FDA-Public Use
  Company Number: US-WYE-H05158108

PATIENT
  Age: 30 Year
  Sex: Female
  Weight: 69.01 kg

DRUGS (4)
  1. PRISTIQ [Suspect]
     Indication: DEPRESSION
     Dosage: 50 MG 1X PER 1 DAY, ORAL
     Route: 048
     Dates: start: 20080702
  2. CYCLOBENZAPRINE [Concomitant]
  3. DARVOCET-N (DEXTROPROPOXYPHENE/PARACETAMOL) [Concomitant]
  4. LYRICA [Concomitant]

REACTIONS (3)
  - LACRIMATION INCREASED [None]
  - MUSCLE TIGHTNESS [None]
  - YAWNING [None]
